FAERS Safety Report 21154921 (Version 6)
Quarter: 2022Q3

REPORT INFORMATION
  Report Type: Report from Study
  Country: US (occurrence: None)
  Receive Date: 20220801
  Receipt Date: 20220913
  Transmission Date: 20221027
  Serious: Yes (Life-Threatening, Hospitalization)
  Sender: FDA-Public Use
  Company Number: US-ROCHE-3128122

PATIENT
  Age: 73 Year
  Sex: Female

DRUGS (49)
  1. FARICIMAB [Suspect]
     Active Substance: FARICIMAB
     Indication: Diabetic retinal oedema
     Dosage: START DATE OF MOST RECENT DOSE 6 MG OF FARICIMAB PRIOR TO AE/SAE: 12/APR/2022 11:22 AM
     Route: 050
     Dates: start: 20210527
  2. BEVACIZUMAB [Suspect]
     Active Substance: BEVACIZUMAB
     Indication: Diabetic retinal oedema
     Dosage: START DATE AND END DATE OF MOST RECENT DOSE 1.25 MG OF STUDY DRUG PRIOR TO AE/SAE: 12/APR/2022
     Route: 050
     Dates: start: 20220412
  3. RANIBIZUMAB [Suspect]
     Active Substance: RANIBIZUMAB
     Indication: Diabetic retinal oedema
     Route: 065
     Dates: start: 20211209
  4. VITAMIN B12 [Concomitant]
     Active Substance: CYANOCOBALAMIN
     Indication: Vitamin B12 decreased
     Route: 048
  5. ULORIC [Concomitant]
     Active Substance: FEBUXOSTAT
     Indication: Gout
     Route: 048
  6. FUROSEMIDE [Concomitant]
     Active Substance: FUROSEMIDE
     Indication: Chronic kidney disease
     Route: 048
     Dates: start: 20180925
  7. ACETAMINOPHEN [Concomitant]
     Active Substance: ACETAMINOPHEN
     Route: 048
     Dates: start: 20201204
  8. AMLODIPINE [Concomitant]
     Active Substance: AMLODIPINE BESYLATE
     Indication: Hypertension
     Route: 048
     Dates: start: 20201204
  9. CALCIUM ACETATE [Concomitant]
     Active Substance: CALCIUM ACETATE
     Indication: Chronic kidney disease
     Route: 048
     Dates: start: 20201204
  10. VITAMIN D3 [Concomitant]
     Active Substance: CHOLECALCIFEROL
     Indication: Vitamin D deficiency
     Route: 048
     Dates: start: 20201205
  11. INSULIN GLARGINE [Concomitant]
     Active Substance: INSULIN GLARGINE
     Indication: Diabetes mellitus
     Route: 058
     Dates: start: 20201204
  12. INSULIN LISPRO [Concomitant]
     Active Substance: INSULIN LISPRO
     Indication: Diabetes mellitus
     Route: 058
     Dates: start: 20201204
  13. NYSTATIN [Concomitant]
     Active Substance: NYSTATIN
     Indication: Fungal infection
     Route: 061
     Dates: start: 20201204
  14. SENNA AND DOCUSATE SODIUM [Concomitant]
     Active Substance: DOCUSATE SODIUM\SENNOSIDES
     Indication: Constipation
     Dates: start: 20201204
  15. TAMSULOSIN [Concomitant]
     Active Substance: TAMSULOSIN
     Indication: Urinary retention
     Route: 048
     Dates: start: 20201204
  16. TRIAMCINOLONE [Concomitant]
     Active Substance: TRIAMCINOLONE
     Indication: Pruritus
     Route: 061
     Dates: start: 20201204
  17. CYCLOBENZAPRINE [Concomitant]
     Active Substance: CYCLOBENZAPRINE
     Route: 048
     Dates: start: 20201128
  18. GABAPENTIN [Concomitant]
     Active Substance: GABAPENTIN
     Indication: Diabetic neuropathy
     Route: 048
     Dates: start: 20200922
  19. TOLTERODINE [Concomitant]
     Active Substance: TOLTERODINE
     Indication: Urinary retention
     Route: 048
     Dates: start: 20201128
  20. FUROSEMIDE [Concomitant]
     Active Substance: FUROSEMIDE
     Indication: Chronic kidney disease
     Route: 042
     Dates: start: 20201217
  21. HEPARIN [Concomitant]
     Active Substance: HEPARIN SODIUM
     Indication: Thrombosis
     Route: 058
     Dates: start: 20201216
  22. HEPARIN [Concomitant]
     Active Substance: HEPARIN SODIUM
     Route: 042
     Dates: start: 20220427
  23. ALBUTEROL\IPRATROPIUM [Concomitant]
     Active Substance: ALBUTEROL\IPRATROPIUM
     Indication: Acute respiratory failure
     Route: 055
     Dates: start: 20201216
  24. METOLAZONE [Concomitant]
     Active Substance: METOLAZONE
     Indication: Chronic kidney disease
     Route: 048
     Dates: start: 20201217
  25. METOLAZONE [Concomitant]
     Active Substance: METOLAZONE
     Indication: Fluid retention
     Route: 048
     Dates: start: 20220629, end: 20220630
  26. VANCOMYCIN [Concomitant]
     Active Substance: VANCOMYCIN
     Indication: Infection
     Route: 042
     Dates: start: 20220627
  27. CEFTRIAXONE [Concomitant]
     Active Substance: CEFTRIAXONE
     Indication: Infection
     Route: 042
     Dates: start: 20220428
  28. CALCIUM GLUCONATE [Concomitant]
     Active Substance: CALCIUM GLUCONATE
     Indication: Blood phosphorus increased
     Route: 042
     Dates: start: 20220626, end: 20220626
  29. PIPERACILLIN AND TAZOBACTAM [Concomitant]
     Active Substance: PIPERACILLIN SODIUM\TAZOBACTAM SODIUM
     Indication: Infection
     Route: 042
     Dates: start: 20220626, end: 20220626
  30. SODIUM ZIRCONIUM CYCLOSILICATE [Concomitant]
     Active Substance: SODIUM ZIRCONIUM CYCLOSILICATE
     Indication: Blood potassium increased
     Route: 048
     Dates: start: 20220626, end: 20220626
  31. CEFEPIME [Concomitant]
     Active Substance: CEFEPIME HYDROCHLORIDE
     Indication: Infection
     Route: 042
     Dates: start: 20220626, end: 20220627
  32. DEXTROSE [Concomitant]
     Active Substance: DEXTROSE
     Indication: Blood glucose decreased
     Route: 042
     Dates: start: 20220626, end: 20220626
  33. DEXTROSE [Concomitant]
     Active Substance: DEXTROSE
     Route: 048
     Dates: start: 20220626, end: 20220707
  34. BISACODYL [Concomitant]
     Active Substance: BISACODYL
     Indication: Constipation
     Route: 048
     Dates: start: 20220626, end: 20220707
  35. DOCUSATE SODIUM [Concomitant]
     Active Substance: DOCUSATE SODIUM
     Indication: Constipation
     Route: 048
     Dates: start: 20220626, end: 20220707
  36. INSULIN NOS [Concomitant]
     Active Substance: INSULIN NOS
     Indication: Diabetes mellitus
     Route: 042
     Dates: start: 20220626, end: 20220626
  37. MELATONIN [Concomitant]
     Active Substance: MELATONIN
     Indication: Prophylaxis
     Route: 048
     Dates: start: 20220626, end: 20220704
  38. HYDROCORTISONE [Concomitant]
     Active Substance: HYDROCORTISONE
     Indication: Skin irritation
     Dosage: PROPHYLAXIS: YES
     Route: 061
     Dates: start: 20220626, end: 20220630
  39. PERFLUTREN PROTEIN-TYPE A [Concomitant]
     Route: 042
     Dates: start: 20220627, end: 20220627
  40. CAMPHOR;MENTHOL [Concomitant]
     Indication: Skin irritation
     Route: 061
     Dates: start: 20220630, end: 20220707
  41. LIDOCAINE [Concomitant]
     Active Substance: LIDOCAINE
     Route: 058
     Dates: start: 20220629, end: 20220629
  42. LIDOCAINE [Concomitant]
     Active Substance: LIDOCAINE
     Route: 058
     Dates: start: 20220701, end: 20220701
  43. DIPHENHYDRAMINE [Concomitant]
     Active Substance: DIPHENHYDRAMINE
     Indication: Pruritus
     Route: 048
     Dates: start: 20220701, end: 20220701
  44. MIDAZOLAM [Concomitant]
     Active Substance: MIDAZOLAM
     Route: 042
     Dates: start: 20220701, end: 20220701
  45. FENTANYL [Concomitant]
     Active Substance: FENTANYL
     Route: 042
     Dates: start: 20220701, end: 20220701
  46. CEFAZOLIN [Concomitant]
     Active Substance: CEFAZOLIN
     Route: 042
     Dates: start: 20220706, end: 20220711
  47. GENTAMICIN [Concomitant]
     Active Substance: GENTAMICIN
     Dates: start: 20220701, end: 20220706
  48. MAGNESIUM SULFATE [Concomitant]
     Active Substance: MAGNESIUM SULFATE
     Indication: Blood magnesium decreased
     Dosage: IN 5% DEXTROSE 100 ML IVPB 1G
     Route: 042
     Dates: start: 20220703, end: 20220705
  49. INSULIN DETEMIR [Concomitant]
     Active Substance: INSULIN DETEMIR
     Indication: Diabetes mellitus
     Dosage: PROPHYLAXIS: YES
     Route: 058
     Dates: start: 20220706, end: 20220706

REACTIONS (4)
  - Device related sepsis [Recovered/Resolved]
  - Toxic encephalopathy [Recovered/Resolved]
  - Acute respiratory failure [Recovered/Resolved]
  - Nephrogenic anaemia [Recovering/Resolving]

NARRATIVE: CASE EVENT DATE: 20220625
